FAERS Safety Report 26103648 (Version 1)
Quarter: 2025Q4

REPORT INFORMATION
  Report Type: Spontaneous
  Country: CN (occurrence: CN)
  Receive Date: 20251129
  Receipt Date: 20251129
  Transmission Date: 20260118
  Serious: Yes (Other)
  Sender: ALEXION PHARMACEUTICALS
  Company Number: CN-ASTRAZENECA-202511CHN023711CN

PATIENT
  Age: 78 Year
  Sex: Female
  Weight: 41 kg

DRUGS (3)
  1. FASLODEX [Suspect]
     Active Substance: FULVESTRANT
     Indication: Breast cancer
     Dosage: 500.000000 MILLIGRAM,1 TIMES 30 DAY
     Dates: start: 20250525, end: 20251103
  2. FASLODEX [Suspect]
     Active Substance: FULVESTRANT
     Dosage: 150.000000 MILLIGRAM,1 TIMES 30 DAY
     Dates: start: 20250525, end: 20251103
  3. ABEMACICLIB [Suspect]
     Active Substance: ABEMACICLIB
     Indication: Breast cancer
     Dosage: 150.000000 MILLIGRAM,2 TIMES 1 DAY

REACTIONS (1)
  - Myelosuppression [Recovering/Resolving]

NARRATIVE: CASE EVENT DATE: 20251103
